FAERS Safety Report 6935553-2 (Version None)
Quarter: 2010Q3

REPORT INFORMATION
  Report Type: 
  Country: None (occurrence: None)
  Receive Date: 20100823
  Receipt Date: 20100810
  Transmission Date: 20110219
  Serious: No
  Sender: FDA-Public Use
  Company Number: 2009BI004587

PATIENT
  Age: 32 Year
  Sex: Female

DRUGS (1)
  1. TYSABRI [Suspect]
     Indication: MULTIPLE SCLEROSIS
     Route: 042
     Dates: start: 20080118

REACTIONS (16)
  - ARTHRALGIA [None]
  - BALANCE DISORDER [None]
  - CONTUSION [None]
  - FALL [None]
  - FATIGUE [None]
  - HEADACHE [None]
  - HYPOTENSION [None]
  - INJECTION SITE PAIN [None]
  - JOINT SPRAIN [None]
  - LIVER DISORDER [None]
  - MYALGIA [None]
  - PAIN [None]
  - POOR VENOUS ACCESS [None]
  - SLEEP DISORDER [None]
  - STRESS [None]
  - VOMITING [None]
